FAERS Safety Report 6672088-9 (Version None)
Quarter: 2010Q2

REPORT INFORMATION
  Report Type: 
  Country: None (occurrence: None)
  Receive Date: 20100407
  Receipt Date: 20100407
  Transmission Date: 20101027
  Serious: Yes (Hospitalization)
  Sender: FDA-Public Use
  Company Number: None

PATIENT
  Sex: Male
  Weight: 60 kg

DRUGS (3)
  1. CARBOPLATIN [Suspect]
  2. ERBITUX [Suspect]
     Dosage: 6286 MG
  3. TAXOL [Suspect]
     Dosage: 994 MG

REACTIONS (3)
  - DEHYDRATION [None]
  - DIZZINESS [None]
  - HYPOPHAGIA [None]
